FAERS Safety Report 6629566-8 (Version None)
Quarter: 2010Q1

REPORT INFORMATION
  Report Type: 
  Country: None (occurrence: None)
  Receive Date: 20100311
  Receipt Date: 20100225
  Transmission Date: 20100710
  Serious: Yes (Hospitalization)
  Sender: FDA-Public Use
  Company Number: US-ELI_LILLY_AND_COMPANY-US201003000699

PATIENT
  Sex: Female

DRUGS (3)
  1. FORTEO [Suspect]
     Indication: OSTEOPOROSIS
     Dosage: 20 UG, DAILY (1/D)
     Dates: start: 20091101
  2. CLONAZEPAM [Concomitant]
  3. PREMARIN [Concomitant]

REACTIONS (5)
  - FALL [None]
  - MALNUTRITION [None]
  - PAIN [None]
  - PNEUMONIA [None]
  - RIB FRACTURE [None]
